FAERS Safety Report 9517129 (Version 1)
Quarter: 2013Q3

REPORT INFORMATION
  Report Type: Spontaneous
  Country: IT (occurrence: IT)
  Receive Date: 20130911
  Receipt Date: 20130911
  Transmission Date: 20140515
  Serious: Yes (Hospitalization)
  Sender: FDA-Public Use
  Company Number: IT-PFIZER INC-2013258265

PATIENT
  Age: 41 Year
  Sex: Male

DRUGS (2)
  1. CIPROFLOXACIN HCL [Suspect]
     Indication: HEPATIC FUNCTION ABNORMAL
     Dosage: 500 MG EVERY 12 HOURS
     Route: 048
  2. DOXYCYCLINE HYCLATE [Suspect]
     Indication: HEPATIC FUNCTION ABNORMAL
     Dosage: 100 MG EVERY 12 HOURS
     Route: 048

REACTIONS (2)
  - Drug ineffective [Unknown]
  - Blood culture positive [Recovered/Resolved]
